FAERS Safety Report 5020032-2 (Version None)
Quarter: 2006Q2

REPORT INFORMATION
  Report Type: 
  Country: None (occurrence: None)
  Receive Date: 20060601
  Receipt Date: 20060523
  Transmission Date: 20061013
  Serious: Yes (Death)
  Sender: FDA-Public Use
  Company Number: 2004-00644

PATIENT
  Age: 67 Year
  Sex: Male
  Weight: 113.2 kg

DRUGS (15)
  1. VELCADE [Suspect]
     Indication: MULTIPLE MYELOMA
     Dosage: 2.60 MG, INTRAVENOUS
     Route: 042
     Dates: start: 20041005, end: 20041008
  2. MS CONTIN [Concomitant]
  3. CELEBREX [Concomitant]
  4. METFORMIN [Concomitant]
  5. GLYBURIDE [Concomitant]
  6. AMITRIPTYLINE HCL [Concomitant]
  7. EPREX [Concomitant]
  8. RHOVANE (ZOPICLONE) [Concomitant]
  9. ACETAMINOPHEN [Concomitant]
  10. SENOKOT [Concomitant]
  11. SOFLAX (DOCUSATE SODIUM) [Concomitant]
  12. LACTULOSE [Concomitant]
  13. PAMIDRONATE DISODIUM [Concomitant]
  14. GINKGO BILOBA (GINKGO BILOBA) TABLET [Concomitant]
  15. CORTISONE (CORTISONE) INJECTION [Concomitant]

REACTIONS (2)
  - MALIGNANT NEOPLASM PROGRESSION [None]
  - MULTIPLE MYELOMA [None]
